FAERS Safety Report 10392687 (Version 2)
Quarter: 2014Q3

REPORT INFORMATION
  Report Type: Spontaneous
  Country: US (occurrence: US)
  Receive Date: 20140819
  Receipt Date: 20140828
  Transmission Date: 20150326
  Serious: Yes (Other)
  Sender: FDA-Public Use
  Company Number: US-009507513-1408USA005595

PATIENT
  Sex: Female

DRUGS (1)
  1. DULERA [Suspect]
     Active Substance: FORMOTEROL FUMARATE DIHYDRATE\MOMETASONE FUROATE
     Dosage: 200/5 MCRG TWO PUFF DAILY OR AS NEEDED
     Route: 055

REACTIONS (4)
  - Hypersensitivity [Recovering/Resolving]
  - Inappropriate schedule of drug administration [Unknown]
  - Sneezing [Recovering/Resolving]
  - Product quality issue [Unknown]
